FAERS Safety Report 11483857 (Version 2)
Quarter: 2015Q3

REPORT INFORMATION
  Report Type: Spontaneous
  Country: US (occurrence: US)
  Receive Date: 20150903
  Receipt Date: 20150903
  Transmission Date: 20151125
  Serious: No
  Sender: FDA-Public Use
  Company Number: US-ELI_LILLY_AND_COMPANY-US201205001697

PATIENT
  Sex: Female

DRUGS (2)
  1. CYMBALTA [Suspect]
     Active Substance: DULOXETINE HYDROCHLORIDE
     Dosage: UNK, UNKNOWN
  2. HUMIRA                                  /USA/ [Concomitant]
     Indication: RHEUMATOID ARTHRITIS
     Dosage: 40 MG, 2/M
     Dates: start: 20111004

REACTIONS (3)
  - Cataract [Unknown]
  - Vision blurred [Unknown]
  - Visual impairment [Unknown]
